FAERS Safety Report 21061479 (Version 1)
Quarter: 2022Q3

REPORT INFORMATION
  Report Type: Spontaneous
  Country: DE (occurrence: DE)
  Receive Date: 20220709
  Receipt Date: 20220709
  Transmission Date: 20221026
  Serious: Yes (Other)
  Sender: FDA-Public Use
  Company Number: DE-NOVARTISPH-NVSC2022DE155323

PATIENT
  Sex: Male

DRUGS (3)
  1. RUXOLITINIB [Suspect]
     Active Substance: RUXOLITINIB
     Indication: Myelofibrosis
     Dosage: 10 MG, BID
     Route: 065
     Dates: start: 202111
  2. ASPIRIN [Suspect]
     Active Substance: ASPIRIN
     Indication: Janus kinase 2 mutation
     Dosage: UNK, BID
     Route: 065
  3. ASPIRIN [Suspect]
     Active Substance: ASPIRIN
     Dosage: UNK
     Route: 065

REACTIONS (5)
  - Epistaxis [Unknown]
  - Von Willebrand^s disease [Unknown]
  - Platelet count increased [Unknown]
  - Haemoglobin decreased [Recovering/Resolving]
  - Product use in unapproved indication [Unknown]
